FAERS Safety Report 5065583-X (Version None)
Quarter: 2006Q3

REPORT INFORMATION
  Report Type: 
  Country: None (occurrence: None)
  Receive Date: 20060714
  Receipt Date: 20060514
  Transmission Date: 20061208
  Serious: No
  Sender: FDA-Public Use
  Company Number: 2006SP002050

PATIENT
  Age: 33 Year
  Sex: Male
  Weight: 108.8633 kg

DRUGS (3)
  1. LUNESTA [Suspect]
     Indication: INSOMNIA
     Dosage: 3 MG;HS;ORAL
     Route: 048
     Dates: start: 20060512, end: 20060513
  2. ROZEREM [Concomitant]
  3. PEPCID [Concomitant]

REACTIONS (1)
  - DYSGEUSIA [None]
